FAERS Safety Report 23160778 (Version 1)
Quarter: 2023Q4

REPORT INFORMATION
  Report Type: Spontaneous
  Country: US (occurrence: US)
  Receive Date: 20231108
  Receipt Date: 20231108
  Transmission Date: 20240110
  Serious: No
  Sender: FDA-Public Use
  Company Number: US-SANOFI-01821436

PATIENT
  Sex: Female

DRUGS (5)
  1. DUPIXENT [Suspect]
     Active Substance: DUPILUMAB
     Indication: Dermatitis atopic
     Dosage: 300MG
     Dates: start: 202108, end: 202112
  2. DUPIXENT [Suspect]
     Active Substance: DUPILUMAB
     Dosage: 300MG
     Dates: start: 202307
  3. TRIAMCINOLONE [Concomitant]
     Active Substance: TRIAMCINOLONE
  4. ELIDEL [Concomitant]
     Active Substance: PIMECROLIMUS
  5. URTICA [Concomitant]

REACTIONS (5)
  - Erythema [Recovering/Resolving]
  - Dermatitis atopic [Not Recovered/Not Resolved]
  - Conjunctivitis [Not Recovered/Not Resolved]
  - Drug ineffective [Unknown]
  - Inappropriate schedule of product administration [Unknown]

NARRATIVE: CASE EVENT DATE: 20210101
